FAERS Safety Report 23437005 (Version 1)
Quarter: 2024Q1

REPORT INFORMATION
  Report Type: Spontaneous
  Country: GB (occurrence: GB)
  Receive Date: 20240124
  Receipt Date: 20240124
  Transmission Date: 20240409
  Serious: Yes (Other)
  Sender: FDA-Public Use
  Company Number: None

PATIENT
  Age: 27 Year
  Sex: Female
  Weight: 59 kg

DRUGS (4)
  1. SERTRALINE [Suspect]
     Active Substance: SERTRALINE HYDROCHLORIDE
     Indication: Ill-defined disorder
     Dosage: INCREASE TO ONE DAILY AFTER
     Dates: start: 20231208
  2. ZOPICLONE [Concomitant]
     Active Substance: ZOPICLONE
     Indication: Ill-defined disorder
     Dosage: ONE OR TWO TO BE TAKEN AT NIGHT AS REQUIRED, MA...
     Dates: start: 20231023, end: 20231024
  3. MIRTAZAPINE [Concomitant]
     Active Substance: MIRTAZAPINE
     Indication: Ill-defined disorder
     Dosage: TAKE ONE TABLET EVERY NIGHT
     Dates: start: 20231206, end: 20231208
  4. SERTRALINE [Concomitant]
     Active Substance: SERTRALINE HYDROCHLORIDE
     Indication: Ill-defined disorder
     Dosage: TAKE HALF DAILY AND INCREASE TO ONE DAILY AFTER
     Dates: start: 20231208

REACTIONS (3)
  - Mania [Recovered/Resolved]
  - Abnormal behaviour [Unknown]
  - Euphoric mood [Unknown]

NARRATIVE: CASE EVENT DATE: 20231220
